FAERS Safety Report 14807768 (Version 1)
Quarter: 2018Q2

REPORT INFORMATION
  Report Type: Spontaneous
  Country: FR (occurrence: FR)
  Receive Date: 20180425
  Receipt Date: 20180425
  Transmission Date: 20180711
  Serious: Yes (Hospitalization)
  Sender: FDA-Public Use
  Company Number: FR-PFIZER INC-2018162997

PATIENT
  Age: 64 Year
  Sex: Male
  Weight: 60 kg

DRUGS (4)
  1. AMLODIPINE BESILATE [Suspect]
     Active Substance: AMLODIPINE BESYLATE
     Indication: HYPERTENSION
     Dosage: 10 MG, UNK
     Route: 048
     Dates: start: 201712
  2. ENALAPRIL MALEATE. [Suspect]
     Active Substance: ENALAPRIL MALEATE
     Indication: HYPERTENSION
     Dosage: 20 MG, 1X/DAY
     Route: 048
     Dates: start: 201712, end: 201803
  3. OXOMEMAZINE [Suspect]
     Active Substance: OXOMEMAZINE
     Indication: COUGH
     Dosage: UNK
     Route: 048
     Dates: start: 20180221
  4. TADENAN [Suspect]
     Active Substance: PYGEUM
     Indication: BENIGN PROSTATIC HYPERPLASIA
     Dosage: 50 MG, 1X/DAY
     Route: 048

REACTIONS (1)
  - Agranulocytosis [Recovered/Resolved]

NARRATIVE: CASE EVENT DATE: 20180224
